FAERS Safety Report 21206553 (Version 1)
Quarter: 2022Q3

REPORT INFORMATION
  Report Type: Spontaneous
  Country: US (occurrence: US)
  Receive Date: 20220812
  Receipt Date: 20220812
  Transmission Date: 20221026
  Serious: Yes (Hospitalization)
  Sender: FDA-Public Use
  Company Number: US-MYLANLABS-2022M1084972

PATIENT
  Age: 56 Year
  Sex: Male

DRUGS (2)
  1. DIPHENHYDRAMINE [Suspect]
     Active Substance: DIPHENHYDRAMINE
     Indication: Insomnia
     Dosage: 4 DOSAGE FORM, QD FOUR TABLETS NIGHTLY TO SLEEP
     Route: 065
  2. DIPHENHYDRAMINE [Suspect]
     Active Substance: DIPHENHYDRAMINE
     Dosage: 12 TABLETS 3 TIMES A DAY (900MG DAILY TOTAL)
     Route: 065

REACTIONS (8)
  - Substance-induced psychotic disorder [Recovered/Resolved]
  - Intentional product misuse [Unknown]
  - Extrapyramidal disorder [Recovered/Resolved]
  - Urinary retention [Recovered/Resolved]
  - Akathisia [Recovered/Resolved]
  - Intentional overdose [Recovered/Resolved]
  - Toxicity to various agents [Recovered/Resolved]
  - Off label use [Unknown]
